FAERS Safety Report 8898516 (Version 1)
Quarter: 2012Q4

REPORT INFORMATION
  Report Type: 
  Country: US (occurrence: US)
  Receive Date: 20121108
  Receipt Date: 20121108
  Transmission Date: 20130627
  Serious: Yes (Other)
  Sender: FDA-Public Use
  Company Number: US-AMGEN-USASP2012031363

PATIENT
  Age: 58 Year
  Sex: Female

DRUGS (10)
  1. ENBREL [Suspect]
     Indication: PRODUCT USED FOR UNKNOWN INDICATION
     Dosage: 50 mg, qwk
     Route: 058
  2. IMURAN                             /00001501/ [Concomitant]
     Dosage: 50 mg, UNK
  3. SYNTHROID [Concomitant]
     Dosage: 112 mug, UNK
  4. HYDROCHLOROTHIAZIDE [Concomitant]
     Dosage: 12.5 mg, UNK
  5. LOSARTAN POTASSIUM [Concomitant]
     Dosage: 50 mg, UNK
  6. CARDIZEM CD [Concomitant]
     Dosage: 360 mg, UNK
  7. AMITRIPTYLIN [Concomitant]
     Dosage: 10 mg, UNK
  8. ASPIRIN [Concomitant]
     Dosage: 81 mg, UNK
  9. PREVACID [Concomitant]
     Dosage: 15 mg, UNK
  10. METFORMIN [Concomitant]
     Dosage: 1000 mg, UNK

REACTIONS (1)
  - Hypersensitivity [Recovered/Resolved]
